FAERS Safety Report 14788747 (Version 1)
Quarter: 2018Q2

REPORT INFORMATION
  Report Type: Report from Study
  Country: None (occurrence: DE)
  Receive Date: 20180423
  Receipt Date: 20180423
  Transmission Date: 20180711
  Serious: Yes (Other)
  Sender: FDA-Public Use
  Company Number: DE-KADMON PHARMACEUTICALS, LLC-KAD-201804-01300

PATIENT
  Age: 76 Year
  Sex: Female
  Weight: 75 kg

DRUGS (12)
  1. VIGANTOLETTEN [Concomitant]
     Active Substance: CHOLECALCIFEROL
     Dosage: 1-0-0
  2. EUTHYROX [Concomitant]
     Active Substance: LEVOTHYROXINE SODIUM
     Dosage: 1-0-0, 75 MCG
  3. ASPIRIN. [Concomitant]
     Active Substance: ASPIRIN
     Dosage: 100 MG
  4. PANTOZOL [Concomitant]
     Active Substance: PANTOPRAZOLE SODIUM
     Dosage: 1-0-0, 20 MG
  5. HARVONI [Suspect]
     Active Substance: LEDIPASVIR\SOFOSBUVIR
     Indication: CHRONIC HEPATITIS C
     Dosage: 90 MG
     Route: 048
     Dates: start: 20141119, end: 20150513
  6. NEXAVAR [Concomitant]
     Active Substance: SORAFENIB
     Dosage: 1-0-1, 400 MG
  7. XARELTO [Concomitant]
     Active Substance: RIVAROXABAN
     Dosage: 1-0-0, 20 MG
  8. CELLCEPT [Concomitant]
     Active Substance: MYCOPHENOLATE MOFETIL\MYCOPHENOLATE MOFETIL HYDROCHLORIDE
     Dosage: 1-0-1, 1000 MG
  9. RIBAVIRIN. [Suspect]
     Active Substance: RIBAVIRIN
     Indication: CHRONIC HEPATITIS C
     Dosage: 800 MG
     Route: 048
     Dates: start: 20141119, end: 20150513
  10. AMLODIPINE [Concomitant]
     Active Substance: AMLODIPINE BESYLATE
     Dosage: 1-0-0
  11. PROGRAF [Concomitant]
     Active Substance: TACROLIMUS\TACROLIMUS ANHYDROUS
     Dosage: 1-0-0, 0.5 MG
  12. EVEROLIMUS. [Concomitant]
     Active Substance: EVEROLIMUS
     Dosage: 1-0-1, 1 MG

REACTIONS (1)
  - Hepatocellular carcinoma [Unknown]
